FAERS Safety Report 19468315 (Version 2)
Quarter: 2021Q3

REPORT INFORMATION
  Report Type: Spontaneous
  Country: TR (occurrence: TR)
  Receive Date: 20210628
  Receipt Date: 20210713
  Transmission Date: 20211014
  Serious: Yes (Hospitalization, Other)
  Sender: FDA-Public Use
  Company Number: TR-PFIZER INC-2003165001TR

PATIENT
  Age: 19 Year
  Sex: Female

DRUGS (1)
  1. ISOPTIN [Suspect]
     Active Substance: VERAPAMIL HYDROCHLORIDE
     Indication: SUICIDE ATTEMPT
     Dosage: 6000 MG (240 MG, 25 IN 1 D)
     Route: 048

REACTIONS (7)
  - Suicide attempt [Recovered/Resolved]
  - Sinus bradycardia [Recovered/Resolved]
  - Hypoxia [Recovered/Resolved]
  - Hypotension [Recovered/Resolved]
  - Dyspnoea [Recovered/Resolved]
  - Intentional overdose [Recovered/Resolved]
  - Pulmonary oedema [Recovered/Resolved]
